FAERS Safety Report 5592411-6 (Version None)
Quarter: 2008Q1

REPORT INFORMATION
  Report Type: 
  Country: None (occurrence: None)
  Receive Date: 20080115
  Receipt Date: 20080103
  Transmission Date: 20080703
  Serious: Yes (Other)
  Sender: FDA-Public Use
  Company Number: US-PFIZER INC-2008001189

PATIENT

DRUGS (1)
  1. LYRICA [Suspect]

REACTIONS (1)
  - COLITIS COLLAGENOUS [None]
